FAERS Safety Report 5278496-5 (Version None)
Quarter: 2007Q1

REPORT INFORMATION
  Report Type: 
  Country: None (occurrence: None)
  Receive Date: 20070328
  Receipt Date: 20070314
  Transmission Date: 20070707
  Serious: Yes (Other)
  Sender: FDA-Public Use
  Company Number: US-AMGEN-STX215041

PATIENT
  Sex: Female

DRUGS (7)
  1. ENBREL [Suspect]
     Indication: RHEUMATOID ARTHRITIS
     Route: 058
     Dates: start: 19990501
  2. PREDNISONE [Concomitant]
  3. HYDROCHLOROTHIAZIDE [Concomitant]
  4. FOSAMAX [Concomitant]
  5. MOBIC [Concomitant]
  6. GABAPENTIN [Concomitant]
  7. DARVOCET-N 100 [Concomitant]

REACTIONS (2)
  - SJOGREN'S SYNDROME [None]
  - TRAUMATIC HAEMATOMA [None]
